FAERS Safety Report 5465256-5 (Version None)
Quarter: 2007Q3

REPORT INFORMATION
  Report Type: 
  Country: None (occurrence: None)
  Receive Date: 20070924
  Receipt Date: 20070917
  Transmission Date: 20080115
  Serious: Yes (Other)
  Sender: FDA-Public Use
  Company Number: PHEH2007US11850

PATIENT
  Age: 72 Year
  Sex: Female

DRUGS (10)
  1. ENABLEX [Suspect]
     Indication: HYPERTONIC BLADDER
     Dosage: 3.75 MG, QD
     Route: 048
     Dates: start: 20070904
  2. ENABLEX [Suspect]
     Dosage: 3.75 MG, QD
     Route: 048
     Dates: start: 20070817, end: 20070831
  3. ENABLEX [Suspect]
     Dosage: 7.5 MG, QD
     Route: 048
     Dates: start: 20070901
  4. PLAVIX [Concomitant]
     Dosage: 75 MG, UNK
  5. GALANTAMINE HYDROBROMIDE [Concomitant]
  6. ZOLOFT [Concomitant]
     Dosage: 25 MG, UNK
  7. ASPIRIN [Concomitant]
  8. PRILOSEC [Concomitant]
     Dosage: 20 MG, UNK
  9. VITAMIN B-12 [Concomitant]
     Dosage: 500 MG, UNK
  10. BACTRIM [Suspect]

REACTIONS (7)
  - AMNESIA [None]
  - BLOOD PRESSURE INCREASED [None]
  - BRADYCARDIA [None]
  - CEREBROVASCULAR ACCIDENT [None]
  - CONDITION AGGRAVATED [None]
  - MENTAL IMPAIRMENT [None]
  - VISUAL DISTURBANCE [None]
